FAERS Safety Report 12967529 (Version 3)
Quarter: 2022Q1

REPORT INFORMATION
  Report Type: Report from Study
  Country: US (occurrence: None)
  Receive Date: 20161123
  Receipt Date: 20220211
  Transmission Date: 20220423
  Serious: Yes (Hospitalization)
  Sender: FDA-Public Use
  Company Number: US-ROCHE-1856057

PATIENT
  Age: 75 Year
  Sex: Male
  Weight: 60.6 kg

DRUGS (7)
  1. RITUXIMAB [Suspect]
     Active Substance: RITUXIMAB
     Indication: Hairy cell leukaemia
     Dosage: ONE TIME DOSE 10 MG/ML. CYCLE 6 DAY 15 TREATMENT
     Route: 042
     Dates: start: 20141024
  2. RITUXIMAB [Suspect]
     Active Substance: RITUXIMAB
     Route: 042
  3. PENTOSTATIN [Suspect]
     Active Substance: PENTOSTATIN
     Indication: Hairy cell leukaemia
     Dosage: ONE TIME DOSE. CYCLE 6 DAY 15 TREATMENT
     Route: 042
     Dates: start: 20141024
  4. PENTOSTATIN [Suspect]
     Active Substance: PENTOSTATIN
     Route: 042
  5. LEVAQUIN [Concomitant]
     Active Substance: LEVOFLOXACIN
  6. AMOXICILLIN [Concomitant]
     Active Substance: AMOXICILLIN
  7. BACTRIM [Concomitant]
     Active Substance: SULFAMETHOXAZOLE\TRIMETHOPRIM

REACTIONS (4)
  - Pneumonia [Recovered/Resolved]
  - Dyspnoea [Recovered/Resolved]
  - Wheezing [Recovered/Resolved]
  - Dyspnoea [Recovered/Resolved]

NARRATIVE: CASE EVENT DATE: 20161101
